FAERS Safety Report 9907973 (Version 2)
Quarter: 2014Q2

REPORT INFORMATION
  Report Type: Report from Study
  Country: GB (occurrence: GB)
  Receive Date: 20140219
  Receipt Date: 20140428
  Transmission Date: 20141212
  Serious: Yes (Hospitalization)
  Sender: FDA-Public Use
  Company Number: GB-ROCHE-1351814

PATIENT
  Age: 84 Year
  Sex: Female

DRUGS (8)
  1. RANIBIZUMAB [Suspect]
     Indication: AGE-RELATED MACULAR DEGENERATION
     Route: 050
     Dates: start: 20110304
  2. RANIBIZUMAB [Suspect]
     Route: 050
     Dates: start: 20131206
  3. ASPIRIN [Concomitant]
     Route: 065
     Dates: start: 20000519
  4. DILTIAZEM [Concomitant]
     Route: 065
     Dates: start: 20061031
  5. LANSOPRAZOLE [Concomitant]
  6. ALENDRONIC ACID [Concomitant]
     Route: 065
     Dates: start: 20070821
  7. ATORVASTATIN [Concomitant]
     Route: 065
     Dates: start: 20100811
  8. INDAPAMIDE [Concomitant]

REACTIONS (3)
  - Fall [Unknown]
  - Atrial fibrillation [Recovered/Resolved with Sequelae]
  - Urinary tract infection [Recovered/Resolved]
